FAERS Safety Report 11699632 (Version 2)
Quarter: 2016Q4

REPORT INFORMATION
  Report Type: Report from Study
  Country: US (occurrence: US)
  Receive Date: 20151105
  Receipt Date: 20161209
  Transmission Date: 20170206
  Serious: Yes (Death, Other)
  Sender: FDA-Public Use
  Company Number: US-ROCHE-1655574

PATIENT

DRUGS (8)
  1. ETOPOSIDE. [Suspect]
     Active Substance: ETOPOSIDE
     Indication: LYMPHOMA
     Dosage: FROM DAYS -6 TO -4 (TOTAL DOSE 2400 MG/M2).
     Route: 042
  2. ETOPOSIDE. [Suspect]
     Active Substance: ETOPOSIDE
     Dosage: FROM DAYS -5 TO -2 (TOTAL DOSE 800 MG/M2)
     Route: 042
  3. CYTARABINE. [Suspect]
     Active Substance: CYTARABINE
     Indication: LYMPHOMA
     Dosage: FROM DAYS -5 TO -2 (TOTAL DOSE 1600 MG/M2)
     Route: 042
  4. MELPHALAN [Suspect]
     Active Substance: MELPHALAN
     Indication: LYMPHOMA
     Dosage: ON DAY -1.
     Route: 042
  5. RITUXIMAB [Suspect]
     Active Substance: RITUXIMAB
     Indication: B-CELL LYMPHOMA
     Route: 065
  6. CARMUSTINE [Suspect]
     Active Substance: CARMUSTINE
     Dosage: ON DAY - 6,
     Route: 042
  7. CISPLATIN. [Suspect]
     Active Substance: CISPLATIN
     Indication: LYMPHOMA
     Dosage: FROM DAYS -7 TO -3  (TOTAL DOSE 200 MG/M2),
     Route: 042
  8. CARMUSTINE [Suspect]
     Active Substance: CARMUSTINE
     Indication: LYMPHOMA
     Dosage: FROM DAYS -6 TO -4 (TOTAL DOSE 600 MG/M2),
     Route: 042

REACTIONS (22)
  - Myelodysplastic syndrome [Fatal]
  - Traumatic intracranial haemorrhage [Unknown]
  - Pneumonitis [Fatal]
  - Hypokalaemia [Unknown]
  - Pulmonary alveolar haemorrhage [Fatal]
  - Hypomagnesaemia [Unknown]
  - Diarrhoea [Unknown]
  - Cardiac disorder [Unknown]
  - Haemorrhage [Unknown]
  - Sepsis [Fatal]
  - Bacteraemia [Unknown]
  - Vomiting [Unknown]
  - Mucosal inflammation [Unknown]
  - Infection [Unknown]
  - Interstitial lung disease [Fatal]
  - Intestinal obstruction [Fatal]
  - Renal disorder [Unknown]
  - Hypophosphataemia [Unknown]
  - Nausea [Unknown]
  - Blood creatinine increased [Unknown]
  - Pneumonia [Fatal]
  - Febrile neutropenia [Unknown]
